FAERS Safety Report 23341175 (Version 1)
Quarter: 2023Q4

REPORT INFORMATION
  Report Type: Spontaneous
  Country: JP (occurrence: JP)
  Receive Date: 20231227
  Receipt Date: 20231227
  Transmission Date: 20240110
  Serious: Yes (Death)
  Sender: FDA-Public Use
  Company Number: JP-JNJFOC-20231267506

PATIENT
  Age: 70 Year
  Sex: Female

DRUGS (12)
  1. TRACLEER [Suspect]
     Active Substance: BOSENTAN
     Indication: Skin ulcer
     Dosage: END DATE: //2023
     Route: 048
     Dates: start: 20170911
  2. BERAPROST SODIUM [Concomitant]
     Active Substance: BERAPROST SODIUM
     Indication: Systemic scleroderma
     Route: 048
     Dates: start: 20080611
  3. SARPOGRELATE HYDROCHLORIDE [Concomitant]
     Active Substance: SARPOGRELATE HYDROCHLORIDE
     Indication: Systemic scleroderma
     Route: 048
     Dates: start: 20090105
  4. METHYLCOBALAMIN [Concomitant]
     Active Substance: METHYLCOBALAMIN
     Indication: Nervous system disorder
     Route: 048
     Dates: start: 20110704
  5. ALCADOL [ALFACALCIDOL] [Concomitant]
     Indication: Osteoporosis
     Route: 048
     Dates: start: 20080611
  6. LYRICA [Concomitant]
     Active Substance: PREGABALIN
     Indication: Nervous system disorder
     Route: 048
     Dates: start: 20110704
  7. ALENDRONATE [Concomitant]
     Active Substance: ALENDRONATE SODIUM
     Indication: Osteoporosis
     Route: 048
     Dates: start: 20111114
  8. GLYCOSAMINOGLYCANS [Concomitant]
     Active Substance: GLYCOSAMINOGLYCANS
     Indication: Systemic scleroderma
     Dosage: DOSE UNKNOWN,Q.S.
     Route: 065
     Dates: start: 20171016, end: 20190121
  9. PREDNISOLONE [Concomitant]
     Active Substance: PREDNISOLONE
     Indication: Interstitial lung disease
     Dosage: 5MGX1TIME/MORNING,3MGX1TIME/EVENING
     Route: 048
     Dates: start: 20080611
  10. TOCOPHERYL NICOTINATE [Concomitant]
     Active Substance: TOCOPHERYL NICOTINATE, D-.ALPHA.
     Indication: Systemic scleroderma
     Route: 048
     Dates: start: 20121205
  11. AMINO ACIDS\DEXTROSE\ELECTROLYTES NOS\SOYBEAN OIL\VITAMINS [Concomitant]
     Active Substance: AMINO ACIDS\DEXTROSE\ELECTROLYTES NOS\SOYBEAN OIL\VITAMINS
     Indication: Systemic scleroderma
     Route: 065
     Dates: start: 20150812
  12. EFINACONAZOLE [Concomitant]
     Active Substance: EFINACONAZOLE
     Indication: Dermatophytosis of nail
     Route: 003
     Dates: start: 20171016, end: 20180115

REACTIONS (1)
  - Arrhythmia [Fatal]
